FAERS Safety Report 15346973 (Version 1)
Quarter: 2018Q3

REPORT INFORMATION
  Report Type: Spontaneous
  Country: US (occurrence: US)
  Receive Date: 20180904
  Receipt Date: 20180904
  Transmission Date: 20181010
  Serious: Yes (Other)
  Sender: FDA-Public Use
  Company Number: US-ALKEM LABORATORIES LIMITED-US-ALKEM-2018-07055

PATIENT
  Age: 30 Year
  Sex: Female

DRUGS (2)
  1. GABAPENTIN. [Suspect]
     Active Substance: GABAPENTIN
     Indication: PRODUCT USED FOR UNKNOWN INDICATION
     Dosage: 600 MG, TID
     Route: 065
  2. GABAPENTIN. [Suspect]
     Active Substance: GABAPENTIN
     Dosage: 600 MG, AFTER EACH DIALYSIS SESSION (MONDAY, WEDNESDAY, AND FRIDAY)
     Route: 065

REACTIONS (3)
  - Toxicity to various agents [Recovering/Resolving]
  - Resting tremor [Unknown]
  - Encephalopathy [Unknown]
